FAERS Safety Report 20697432 (Version 2)
Quarter: 2022Q3

REPORT INFORMATION
  Report Type: Report from Study
  Country: CA (occurrence: CA)
  Receive Date: 20220411
  Receipt Date: 20220707
  Transmission Date: 20221026
  Serious: Yes (Hospitalization)
  Sender: FDA-Public Use
  Company Number: CA-BIOGEN-2022BI01111580

PATIENT
  Sex: Female

DRUGS (2)
  1. TYSABRI [Suspect]
     Active Substance: NATALIZUMAB
     Indication: Multiple sclerosis
     Route: 050
     Dates: start: 20180423
  2. TYSABRI [Suspect]
     Active Substance: NATALIZUMAB
     Route: 050
     Dates: start: 20180423

REACTIONS (13)
  - Dyspnoea [Not Recovered/Not Resolved]
  - Feeling cold [Unknown]
  - Rales [Not Recovered/Not Resolved]
  - Chest pain [Unknown]
  - COVID-19 [Not Recovered/Not Resolved]
  - Multiple sclerosis [Unknown]
  - Insomnia [Recovered/Resolved]
  - Prescribed underdose [Unknown]
  - Large intestine polyp [Not Recovered/Not Resolved]
  - Hypotension [Not Recovered/Not Resolved]
  - Dyschezia [Not Recovered/Not Resolved]
  - Oesophageal irritation [Not Recovered/Not Resolved]
  - Post-acute COVID-19 syndrome [Not Recovered/Not Resolved]

NARRATIVE: CASE EVENT DATE: 20220101
